FAERS Safety Report 7719162-3 (Version None)
Quarter: 2011Q3

REPORT INFORMATION
  Report Type: 
  Country: None (occurrence: None)
  Receive Date: 20110830
  Receipt Date: 20110829
  Transmission Date: 20111222
  Serious: Yes (Hospitalization)
  Sender: FDA-Public Use
  Company Number: ES-AMGEN-ESPCT2011043939

PATIENT
  Age: 63 Year
  Sex: Female

DRUGS (1)
  1. PANITUMUMAB [Suspect]

REACTIONS (2)
  - RADIATION SKIN INJURY [None]
  - ERYTHEMA [None]
